FAERS Safety Report 5813703-9 (Version None)
Quarter: 2008Q3

REPORT INFORMATION
  Report Type: 
  Country: None (occurrence: None)
  Receive Date: 20080717
  Receipt Date: 20080709
  Transmission Date: 20090109
  Serious: Yes (Other)
  Sender: FDA-Public Use
  Company Number: CN-ROCHE-575769

PATIENT
  Age: 34 Year
  Sex: Male

DRUGS (2)
  1. CEFTRIAXONE SODIUM [Suspect]
     Indication: DRUG USE FOR UNKNOWN INDICATION
     Dosage: GIVEN WITH GLUCOSE SODIUM CHLORIDE 250 ML, ROUTE: I.V.GTT, DRUG WAS STOPPED AFTER 10ML.
     Route: 042
  2. HEXADECADROL [Concomitant]

REACTIONS (8)
  - BLOOD PRESSURE DECREASED [None]
  - CYANOSIS [None]
  - DYSPHORIA [None]
  - DYSPNOEA [None]
  - NAUSEA [None]
  - PALPITATIONS [None]
  - TRISMUS [None]
  - VOMITING [None]
